FAERS Safety Report 13035897 (Version 6)
Quarter: 2021Q4

REPORT INFORMATION
  Report Type: Spontaneous
  Country: US (occurrence: US)
  Receive Date: 20161216
  Receipt Date: 20211213
  Transmission Date: 20220304
  Serious: No
  Sender: FDA-Public Use
  Company Number: US-PFIZER INC-2016582516

PATIENT
  Age: 60 Year
  Sex: Female
  Weight: 60.33 kg

DRUGS (2)
  1. PREMARIN [Suspect]
     Active Substance: ESTROGENS, CONJUGATED
     Indication: Hysterectomy
     Dosage: UNK
     Dates: start: 1988
  2. PREMARIN [Suspect]
     Active Substance: ESTROGENS, CONJUGATED
     Dosage: 1.25 MG, DAILY
     Dates: start: 1988

REACTIONS (7)
  - Expired product administered [Unknown]
  - Hot flush [Not Recovered/Not Resolved]
  - Feeling of body temperature change [Not Recovered/Not Resolved]
  - Blood cholesterol increased [Unknown]
  - Memory impairment [Unknown]
  - Herpes zoster [Unknown]
  - Off label use [Unknown]
